FAERS Safety Report 21089179 (Version 1)
Quarter: 2022Q3

REPORT INFORMATION
  Report Type: Spontaneous
  Country: US (occurrence: None)
  Receive Date: 20220715
  Receipt Date: 20220715
  Transmission Date: 20221027
  Serious: Yes (Other)
  Sender: FDA-Public Use
  Company Number: None

PATIENT
  Age: 65 Year
  Sex: Female

DRUGS (1)
  1. BEBTELOVIMAB [Suspect]
     Active Substance: BEBTELOVIMAB
     Indication: COVID-19
     Dosage: OTHER FREQUENCY : ONCE;?
     Route: 042
     Dates: start: 20220701, end: 20220701

REACTIONS (6)
  - Erythema [None]
  - Flushing [None]
  - Nausea [None]
  - Loss of consciousness [None]
  - Chills [None]
  - Infusion related reaction [None]

NARRATIVE: CASE EVENT DATE: 20220701
